FAERS Safety Report 6309415-8 (Version None)
Quarter: 2009Q3

REPORT INFORMATION
  Report Type: 
  Country: None (occurrence: None)
  Receive Date: 20090814
  Receipt Date: 20090810
  Transmission Date: 20100115
  Serious: Yes (Death, Hospitalization, Other)
  Sender: FDA-Public Use
  Company Number: US-ROCHE-649570

PATIENT
  Age: 9 Year
  Sex: Male

DRUGS (8)
  1. GANCICLOVIR SODIUM [Suspect]
     Indication: CYTOMEGALOVIRUS INFECTION
     Route: 065
  2. INFLIXIMAB [Suspect]
     Indication: CROHN'S DISEASE
     Dosage: FORM: INFUSION
     Route: 065
  3. MERCAPTOPURINE [Suspect]
     Indication: CROHN'S DISEASE
     Route: 065
  4. VANCOMYCIN [Suspect]
     Indication: DRUG USE FOR UNKNOWN INDICATION
     Route: 065
  5. TICARCILLIN/CLAVULANATE [Suspect]
     Indication: DRUG USE FOR UNKNOWN INDICATION
     Route: 065
  6. FOSCARNET [Suspect]
     Indication: CYTOMEGALOVIRUS INFECTION
     Route: 065
  7. UNSPECIFIED DRUG [Suspect]
     Indication: DRUG USE FOR UNKNOWN INDICATION
     Dosage: DRUG NAME REPORTED AS IMMUNOGLOBULIN
     Route: 065
  8. UNSPECIFIED DRUG [Suspect]
     Indication: PROPHYLAXIS
     Dosage: DRUG NAME REPORTED AS ANTIFUNGAL THERAPY
     Route: 065

REACTIONS (9)
  - BRONCHOPNEUMONIA [None]
  - CYTOMEGALOVIRUS COLITIS [None]
  - DISSEMINATED CYTOMEGALOVIRAL INFECTION [None]
  - HAEMOGLOBIN DECREASED [None]
  - HEPATIC FAILURE [None]
  - HEPATITIS [None]
  - PNEUMONITIS [None]
  - RESPIRATORY FAILURE [None]
  - SEPSIS [None]
